FAERS Safety Report 26073974 (Version 1)
Quarter: 2025Q4

REPORT INFORMATION
  Report Type: Spontaneous
  Country: JP (occurrence: JP)
  Receive Date: 20251121
  Receipt Date: 20251121
  Transmission Date: 20260118
  Serious: Yes (Other)
  Sender: MACLEODS
  Company Number: JP-MACLEODS PHARMA-MAC2025056302

PATIENT

DRUGS (2)
  1. TRIAMCINOLONE [Suspect]
     Active Substance: TRIAMCINOLONE
     Indication: Diabetic retinal oedema
     Dosage: SIX INTRAVITREAL INJECTIONS OF IVT (4 MG/0.1 ML) FOR RIGHT EYE AND 14 IVT INJECTIONS IN LEFT EYE
     Route: 035
     Dates: start: 2018, end: 202303
  2. TRIAMCINOLONE [Suspect]
     Active Substance: TRIAMCINOLONE
     Dosage: ONE SUBTENON (RIGHT EYE) AND IN LEFT EYE
     Route: 058
     Dates: start: 2018

REACTIONS (2)
  - Intraocular pressure increased [Recovering/Resolving]
  - Product deposit [Recovered/Resolved]

NARRATIVE: CASE EVENT DATE: 20230301
